FAERS Safety Report 15325931 (Version 1)
Quarter: 2018Q3

REPORT INFORMATION
  Report Type: Spontaneous
  Country: CH (occurrence: CH)
  Receive Date: 20180828
  Receipt Date: 20180828
  Transmission Date: 20181010
  Serious: Yes (Hospitalization)
  Sender: FDA-Public Use
  Company Number: CH-PFIZER INC-2018337451

PATIENT
  Age: 46 Year
  Sex: Female

DRUGS (7)
  1. METO ZEROK [Concomitant]
     Active Substance: METOPROLOL SUCCINATE
     Dosage: 50 MG, 1X/DAY
     Route: 048
     Dates: start: 2010
  2. SOLU?MEDROL [Suspect]
     Active Substance: METHYLPREDNISOLONE SODIUM SUCCINATE
     Dosage: 1000 MG, 1X/DAY
     Route: 042
     Dates: start: 20180207, end: 20180209
  3. EUTHYROX [Concomitant]
     Active Substance: LEVOTHYROXINE SODIUM
     Dosage: 100 UG, 1X/DAY
     Dates: start: 2000
  4. SOLU?MEDROL [Suspect]
     Active Substance: METHYLPREDNISOLONE SODIUM SUCCINATE
     Indication: MULTIPLE SCLEROSIS
     Dosage: UNK
  5. COPAXONE [Concomitant]
     Active Substance: GLATIRAMER ACETATE
     Dosage: 20 MG, 1X/DAY (20 MG/ML PRE?FILLED SYRINGE)
     Route: 058
     Dates: start: 20120207
  6. TRANSIPEG [MACROGOL 3350;POTASSIUM CHLORIDE;SODIUM BICARBONATE;SODIUM [Concomitant]
     Dosage: UNK UNK, AS NEEDED
     Dates: start: 2012
  7. LEVOCETIRIZIN SPIRIG HC [Concomitant]
     Indication: ERYTHEMA
     Dosage: 5 MG, AS NEEDED
     Dates: start: 201202, end: 201802

REACTIONS (6)
  - Decreased appetite [Unknown]
  - Hepatitis [Unknown]
  - Fatigue [Unknown]
  - Urticaria [Unknown]
  - Transaminases increased [Unknown]
  - Pruritus [Unknown]

NARRATIVE: CASE EVENT DATE: 201111
